FAERS Safety Report 23779207 (Version 1)
Quarter: 2024Q2

REPORT INFORMATION
  Report Type: Spontaneous
  Country: US (occurrence: None)
  Receive Date: 20240424
  Receipt Date: 20240424
  Transmission Date: 20240716
  Serious: No
  Sender: FDA-Public Use
  Company Number: None

PATIENT
  Age: 21 Year
  Sex: Female
  Weight: 60.75 kg

DRUGS (2)
  1. LEXAPRO [Suspect]
     Active Substance: ESCITALOPRAM OXALATE
     Indication: Depression
     Dosage: 1 TABLET DAILY ORAL
     Route: 048
     Dates: start: 20240327, end: 20240401
  2. Sprintec birth control [Concomitant]

REACTIONS (17)
  - Migraine [None]
  - Paraesthesia [None]
  - Dizziness [None]
  - Fatigue [None]
  - Balance disorder [None]
  - Myalgia [None]
  - Visual impairment [None]
  - Body temperature fluctuation [None]
  - Increased tendency to bruise [None]
  - Confusional state [None]
  - Tremor [None]
  - Presyncope [None]
  - Seizure [None]
  - Hypotension [None]
  - Heart rate decreased [None]
  - Blood glucose decreased [None]
  - Memory impairment [None]

NARRATIVE: CASE EVENT DATE: 20240401
